FAERS Safety Report 4775484-X (Version None)
Quarter: 2005Q3

REPORT INFORMATION
  Report Type: 
  Country: None (occurrence: None)
  Receive Date: 20050914
  Receipt Date: 20050315
  Transmission Date: 20060218
  Serious: Yes (Death)
  Sender: FDA-Public Use
  Company Number: 163-20785-05030377

PATIENT
  Age: 75 Year
  Sex: Female

DRUGS (1)
  1. THALOMID [Suspect]
     Indication: MYELODYSPLASTIC SYNDROME
     Dosage: 300 MG, DAILY, ORAL
     Route: 048
     Dates: start: 20030919, end: 20040801

REACTIONS (5)
  - ANAEMIA [None]
  - ARRHYTHMIA [None]
  - DEATH [None]
  - DISEASE PROGRESSION [None]
  - HAEMORRHAGE [None]
